FAERS Safety Report 7061862-5 (Version None)
Quarter: 2010Q4

REPORT INFORMATION
  Report Type: 
  Country: None (occurrence: None)
  Receive Date: 20101026
  Receipt Date: 20101015
  Transmission Date: 20110411
  Serious: Yes (Hospitalization, Other)
  Sender: FDA-Public Use
  Company Number: CHPA2010GB16306

PATIENT
  Age: 26 Year
  Sex: Female
  Weight: 49.4 kg

DRUGS (14)
  1. SENNA (NCH) [Suspect]
     Dosage: UNK, UNK
     Route: 065
     Dates: start: 20090309, end: 20090420
  2. ALENDRONIC ACID (NGX) [Suspect]
     Indication: SYSTEMIC LUPUS ERYTHEMATOSUS
     Dosage: 70 MG, QD
     Route: 065
  3. LACTULOSE (NGX) [Suspect]
     Dosage: UNK, UNK
     Route: 065
     Dates: start: 20090309, end: 20090420
  4. PARACETAMOL [Suspect]
     Dosage: UNK, UNK
     Route: 065
     Dates: start: 20090309, end: 20090420
  5. MUPIROCIN [Suspect]
     Dosage: UNK, UNK
     Route: 065
     Dates: start: 20090309, end: 20090420
  6. CHLORHEXIDINE GLUCONATE [Suspect]
     Dosage: UNK, UNK
     Route: 065
     Dates: start: 20090309, end: 20090420
  7. SIMPLE LINCTUS [Suspect]
     Dosage: UNK, UNK
     Route: 065
     Dates: start: 20090309, end: 20090420
  8. AZATHIOPRINE [Suspect]
     Dosage: 50 MG, QD
     Route: 065
     Dates: start: 20090309
  9. PREDNISOLONE [Suspect]
     Dosage: UNK, UNK
     Route: 065
     Dates: start: 20090309
  10. ADCAL-D3 [Suspect]
     Dosage: UNK, UNK
     Route: 065
  11. HYDROXYCHLOROQUINE [Suspect]
     Dosage: 200 MG, QD
     Route: 065
     Dates: start: 20090318
  12. METHYLPREDNISOLONE [Suspect]
     Dosage: UNK, UNK
     Route: 065
  13. ASPIRIN [Concomitant]
     Dosage: UNK, UNK
     Route: 065
  14. FOLIC ACID [Concomitant]
     Dosage: UNK, UNK
     Route: 065

REACTIONS (5)
  - ABORTION INDUCED [None]
  - DRUG EXPOSURE DURING PREGNANCY [None]
  - PREGNANCY [None]
  - SYSTEMIC LUPUS ERYTHEMATOSUS [None]
  - URINARY TRACT INFECTION [None]
